FAERS Safety Report 9907326 (Version 1)
Quarter: 2014Q1

REPORT INFORMATION
  Report Type: Report from Study
  Country: US (occurrence: US)
  Receive Date: 20140218
  Receipt Date: 20140218
  Transmission Date: 20141002
  Serious: Yes (Other)
  Sender: FDA-Public Use
  Company Number: US-ABBVIE-14P-163-1199519-00

PATIENT
  Age: 64 Year
  Sex: Female

DRUGS (7)
  1. HUMIRA [Suspect]
     Indication: COLITIS ULCERATIVE
     Dates: start: 201310
  2. FERROUS GLUCONATE [Concomitant]
     Indication: ANAEMIA
  3. AZATHIOPRINE [Concomitant]
     Indication: COLITIS ULCERATIVE
  4. POTASSIUM CHLORIDE [Concomitant]
     Indication: BLOOD POTASSIUM DECREASED
  5. PANTOPRAZOLE [Concomitant]
     Indication: GASTROOESOPHAGEAL REFLUX DISEASE
  6. VITAMIN D [Concomitant]
     Indication: VITAMIN SUPPLEMENTATION
  7. VITAMIN A [Concomitant]
     Indication: VITAMIN SUPPLEMENTATION

REACTIONS (2)
  - Urinary tract obstruction [Unknown]
  - Ureteric obstruction [Unknown]
